FAERS Safety Report 8805070 (Version 2)
Quarter: 2015Q2

REPORT INFORMATION
  Report Type: Report from Study
  Country: US (occurrence: US)
  Receive Date: 20120924
  Receipt Date: 20150402
  Transmission Date: 20150821
  Serious: Yes (Death, Other)
  Sender: FDA-Public Use
  Company Number: US-ROCHE-1128795

PATIENT
  Sex: Female

DRUGS (15)
  1. IRINOTECAN [Concomitant]
     Active Substance: IRINOTECAN
     Route: 042
  2. ZOFRAN [Concomitant]
     Active Substance: ONDANSETRON HYDROCHLORIDE
     Route: 048
  3. CAMPTOSAR [Concomitant]
     Active Substance: IRINOTECAN HYDROCHLORIDE
     Route: 065
  4. AMBIEN CR [Concomitant]
     Active Substance: ZOLPIDEM TARTRATE
     Route: 048
  5. FLUCONAZOLE. [Concomitant]
     Active Substance: FLUCONAZOLE
  6. ZOFRAN [Concomitant]
     Active Substance: ONDANSETRON HYDROCHLORIDE
     Route: 048
  7. NORMAL SALINE [Concomitant]
     Active Substance: SODIUM CHLORIDE
     Route: 042
  8. ATIVAN [Concomitant]
     Active Substance: LORAZEPAM
     Route: 065
  9. DECADRON [Concomitant]
     Active Substance: DEXAMETHASONE
     Route: 048
     Dates: start: 20080409
  10. ATIVAN [Concomitant]
     Active Substance: LORAZEPAM
     Dosage: AS PER NEEDED
     Route: 048
     Dates: start: 20080211
  11. TRANSDERM SCOP [Concomitant]
     Active Substance: SCOPOLAMINE
     Route: 062
     Dates: start: 20080304
  12. ATROPINE [Concomitant]
     Active Substance: ATROPINE
     Route: 065
  13. LIDOCAINE. [Concomitant]
     Active Substance: LIDOCAINE
     Route: 065
  14. CIMETIDINE [Concomitant]
     Active Substance: CIMETIDINE
  15. AVASTIN [Suspect]
     Active Substance: BEVACIZUMAB
     Indication: BRAIN NEOPLASM MALIGNANT
     Route: 042

REACTIONS (9)
  - Dyspnoea [Unknown]
  - Off label use [Unknown]
  - Coma [Unknown]
  - Constipation [Unknown]
  - Salivary hypersecretion [Unknown]
  - Neuropathy peripheral [Unknown]
  - Muscle spasms [Unknown]
  - Disease progression [Fatal]
  - Oropharyngeal candidiasis [Unknown]
